FAERS Safety Report 8650344 (Version 5)
Quarter: 2012Q4

REPORT INFORMATION
  Report Type: 
  Country: FR (occurrence: LU)
  Receive Date: 20120705
  Receipt Date: 20121001
  Transmission Date: 20130627
  Serious: Yes (Disabling, Other)
  Sender: FDA-Public Use
  Company Number: PHHY2012LU057365

PATIENT
  Age: 65 Year
  Sex: Female

DRUGS (1)
  1. GILENYA [Suspect]
     Indication: MULTIPLE SCLEROSIS
     Dosage: 0.5 mg, QD
     Route: 048
     Dates: start: 20120622, end: 20120823

REACTIONS (3)
  - Jaw disorder [Recovering/Resolving]
  - Tooth disorder [Recovering/Resolving]
  - Trigeminal neuralgia [Recovered/Resolved]
